FAERS Safety Report 10540428 (Version 1)
Quarter: 2014Q4

REPORT INFORMATION
  Report Type: Spontaneous
  Country: US (occurrence: US)
  Receive Date: 20141024
  Receipt Date: 20141024
  Transmission Date: 20150529
  Serious: No
  Sender: FDA-Public Use
  Company Number: US-UPSHER-SMITH LABORATORIES, INC.-14000956

PATIENT
  Age: 60 Year
  Sex: Female

DRUGS (4)
  1. KLOR-CON M [Suspect]
     Active Substance: POTASSIUM CHLORIDE
     Dosage: 30 MEQ, BID
     Route: 048
     Dates: start: 201403, end: 201403
  2. KLOR-CON M [Suspect]
     Active Substance: POTASSIUM CHLORIDE
     Dosage: 35 MEQ, BID
     Route: 048
     Dates: start: 201403, end: 20140418
  3. KLOR-CON M [Suspect]
     Active Substance: POTASSIUM CHLORIDE
     Indication: BLOOD POTASSIUM DECREASED
     Dosage: 40 MEQ, BID
     Route: 048
     Dates: start: 201401, end: 201403
  4. NEXIUM [Concomitant]
     Active Substance: ESOMEPRAZOLE MAGNESIUM
     Dosage: UNK

REACTIONS (6)
  - Alopecia [Recovered/Resolved]
  - Dysuria [Recovering/Resolving]
  - Blood potassium increased [Recovered/Resolved]
  - Discomfort [Recovered/Resolved]
  - Palpitations [Recovered/Resolved]
  - Pollakiuria [Recovering/Resolving]

NARRATIVE: CASE EVENT DATE: 201402
